FAERS Safety Report 12935980 (Version 1)
Quarter: 2016Q4

REPORT INFORMATION
  Report Type: Spontaneous
  Country: US (occurrence: US)
  Receive Date: 20161111
  Receipt Date: 20161111
  Transmission Date: 20170207
  Serious: Yes (Hospitalization)
  Sender: FDA-Public Use
  Company Number: None

PATIENT
  Age: 57 Year
  Sex: Female

DRUGS (21)
  1. GENOTROPIN MINIQUICK 0.4 MG [Suspect]
     Active Substance: SOMATROPIN
     Indication: FAILURE TO THRIVE
     Route: 058
     Dates: start: 20130102
  2. TYLENOL [Concomitant]
     Active Substance: ACETAMINOPHEN
  3. HUMALOG [Concomitant]
     Active Substance: INSULIN LISPRO
  4. SIMVASTATIN. [Concomitant]
     Active Substance: SIMVASTATIN
  5. CALCIUM [Concomitant]
     Active Substance: CALCIUM
  6. LEVOTHYROXIN [Concomitant]
     Active Substance: LEVOTHYROXINE
  7. NOVOLOG [Concomitant]
     Active Substance: INSULIN ASPART
  8. FLUTICASONE [Concomitant]
     Active Substance: FLUTICASONE\FLUTICASONE PROPIONATE
  9. AZELASTINE [Concomitant]
     Active Substance: AZELASTINE
  10. LATANOPROST. [Concomitant]
     Active Substance: LATANOPROST
  11. SERTRALINE [Concomitant]
     Active Substance: SERTRALINE HYDROCHLORIDE
  12. LANTUS [Concomitant]
     Active Substance: INSULIN GLARGINE
  13. PROTONIX [Concomitant]
     Active Substance: PANTOPRAZOLE SODIUM
  14. FLUPHENZAINE [Concomitant]
  15. AZOPT [Concomitant]
     Active Substance: BRINZOLAMIDE
  16. JANUVIA [Concomitant]
     Active Substance: SITAGLIPTIN PHOSPHATE
  17. ONETOUCH TES ULTRA BL [Concomitant]
  18. GABAPENTIN. [Concomitant]
     Active Substance: GABAPENTIN
  19. MELATONIN [Concomitant]
     Active Substance: MELATONIN
  20. TIMOLOL MAL [Concomitant]
  21. PANTOPRAZOLE [Concomitant]
     Active Substance: PANTOPRAZOLE SODIUM

REACTIONS (3)
  - Dyspnoea [None]
  - Blood glucose decreased [None]
  - Blood sodium decreased [None]

NARRATIVE: CASE EVENT DATE: 201610
